FAERS Safety Report 4891660-X (Version None)
Quarter: 2005Q4

REPORT INFORMATION
  Report Type: 
  Country: None (occurrence: None)
  Receive Date: 20051220
  Receipt Date: 20050920
  Transmission Date: 20060501
  Serious: Yes (Other)
  Sender: FDA-Public Use
  Company Number: 418604

PATIENT
  Sex: Female

DRUGS (3)
  1. BONIVA [Suspect]
     Indication: DRUG USE FOR UNKNOWN INDICATION
     Dates: start: 20050615
  2. FOSAMAX [Concomitant]
  3. MULTIVITAMIN NOS (MULTIVITAMIN NOS) [Concomitant]

REACTIONS (1)
  - GRANULOMA ANNULARE [None]
